FAERS Safety Report 11095741 (Version 1)
Quarter: 2015Q2

REPORT INFORMATION
  Report Type: Spontaneous
  Country: CA (occurrence: CA)
  Receive Date: 20150507
  Receipt Date: 20150507
  Transmission Date: 20150821
  Serious: Yes (Other)
  Sender: FDA-Public Use
  Company Number: CA-AMGEN-KDL096927

PATIENT
  Age: 57 Year
  Sex: Female

DRUGS (7)
  1. ENBREL [Suspect]
     Active Substance: ETANERCEPT
     Indication: RHEUMATOID ARTHRITIS
     Dosage: 25 MG, 2 TIMES/WK
     Route: 058
     Dates: start: 20040727
  2. ARAVA [Concomitant]
     Active Substance: LEFLUNOMIDE
     Dosage: UNK
  3. METHOTREXATE (METHOTREXATE SODIUM) [Suspect]
     Active Substance: METHOTREXATE SODIUM
     Indication: PRODUCT USED FOR UNKNOWN INDICATION
     Dosage: UNK UNK, UNK
     Route: 065
  4. PLAQUENIL [Concomitant]
     Active Substance: HYDROXYCHLOROQUINE SULFATE
     Dosage: UNK
  5. HUMIRA [Suspect]
     Active Substance: ADALIMUMAB
     Indication: PRODUCT USED FOR UNKNOWN INDICATION
     Dosage: UNK
     Route: 065
  6. RITUXAN [Suspect]
     Active Substance: RITUXIMAB
     Indication: PRODUCT USED FOR UNKNOWN INDICATION
     Dosage: UNK
     Route: 065
  7. ORENCIA [Concomitant]
     Active Substance: ABATACEPT
     Dosage: UNK

REACTIONS (11)
  - Arthralgia [Unknown]
  - Intestinal operation [Unknown]
  - Gastrectomy [Unknown]
  - Drug effect decreased [Unknown]
  - Condition aggravated [Unknown]
  - Abdominal distension [Unknown]
  - Abdominal pain upper [Unknown]
  - Back pain [Unknown]
  - Joint swelling [Unknown]
  - Drug intolerance [Unknown]
  - Hand deformity [Unknown]

NARRATIVE: CASE EVENT DATE: 2004
